FAERS Safety Report 7805407-8 (Version None)
Quarter: 2011Q4

REPORT INFORMATION
  Report Type: 
  Country: None (occurrence: None)
  Receive Date: 20111010
  Receipt Date: 20110815
  Transmission Date: 20120403
  Serious: No
  Sender: FDA-Public Use
  Company Number: US-BAYER-2011-073357

PATIENT
  Sex: Male

DRUGS (4)
  1. ASPIRIN [Concomitant]
  2. ALPRAZOLAM [Concomitant]
  3. LISINOPRIL AND HYDROCHLOROTHIAZIDE [Concomitant]
  4. LEVITRA [Suspect]
     Indication: ERECTILE DYSFUNCTION
     Dosage: 10 MG, PRN
     Dates: start: 20060101

REACTIONS (2)
  - DRUG INEFFECTIVE [None]
  - HEADACHE [None]
